FAERS Safety Report 9404664 (Version 1)
Quarter: 2013Q3

REPORT INFORMATION
  Report Type: Report from Study
  Country: BR (occurrence: BR)
  Receive Date: 20130717
  Receipt Date: 20130717
  Transmission Date: 20140515
  Serious: Yes (Other)
  Sender: FDA-Public Use
  Company Number: PHHY2013BR075792

PATIENT
  Sex: Female

DRUGS (2)
  1. TEGRETOL CR [Suspect]
     Indication: EPILEPSY
     Dosage: 1 DF, BID
  2. TEGRETOL CR [Suspect]
     Dosage: 3 DF, DAILY

REACTIONS (3)
  - Fall [Recovering/Resolving]
  - Petit mal epilepsy [Recovering/Resolving]
  - Cardiac disorder [Recovering/Resolving]
